FAERS Safety Report 15007105 (Version 3)
Quarter: 2018Q3

REPORT INFORMATION
  Report Type: Report from Study
  Country: US (occurrence: US)
  Receive Date: 20180613
  Receipt Date: 20180815
  Transmission Date: 20181010
  Serious: Yes (Other)
  Sender: FDA-Public Use
  Company Number: US-PFIZER INC-2018065395

PATIENT
  Age: 54 Year
  Sex: Female

DRUGS (4)
  1. IBRANCE [Suspect]
     Active Substance: PALBOCICLIB
     Dosage: 125 MG, CYCLIC (DAILY FOR 21 DAYS AND OFF 7 DAYS)
     Route: 048
     Dates: start: 20180129
  2. LETROZOLE. [Concomitant]
     Active Substance: LETROZOLE
     Dosage: UNK UNK, DAILY
  3. IBRANCE [Suspect]
     Active Substance: PALBOCICLIB
     Indication: BREAST CANCER FEMALE
     Dosage: 125 MG, CYCLIC (DAILY/3 WEEKS ON, ONE WEEK OFF)
     Route: 048
     Dates: start: 20180129, end: 2018
  4. IBRANCE [Suspect]
     Active Substance: PALBOCICLIB
     Dosage: 125 MG, CYCLIC (DAILY; 3 WEEKS ON/1 WEEK OFF)
     Route: 048
     Dates: start: 20180312, end: 20180402

REACTIONS (21)
  - Bone marrow failure [Recovering/Resolving]
  - Full blood count decreased [Unknown]
  - Dysgeusia [Unknown]
  - Chest pain [Unknown]
  - Upper-airway cough syndrome [Recovering/Resolving]
  - Oropharyngeal pain [Recovered/Resolved]
  - Pyrexia [Unknown]
  - Red blood cell count decreased [Unknown]
  - White blood cell count decreased [Unknown]
  - Ear pain [Recovering/Resolving]
  - Stomatitis [Unknown]
  - Upper respiratory tract infection [Unknown]
  - Pain [Unknown]
  - Sinus congestion [Recovering/Resolving]
  - Fatigue [Not Recovered/Not Resolved]
  - Epistaxis [Unknown]
  - Cough [Recovering/Resolving]
  - Headache [Unknown]
  - Drug dose omission [Unknown]
  - Breast pain [Unknown]
  - Dyspnoea [Recovered/Resolved]

NARRATIVE: CASE EVENT DATE: 2018
